FAERS Safety Report 5899101-0 (Version None)
Quarter: 2008Q3

REPORT INFORMATION
  Report Type: 
  Country: None (occurrence: None)
  Receive Date: 20080925
  Receipt Date: 20080917
  Transmission Date: 20090109
  Serious: Yes (Other)
  Sender: FDA-Public Use
  Company Number: CA-AMGEN-KDL302258

PATIENT
  Sex: Female
  Weight: 47.7 kg

DRUGS (4)
  1. ENBREL [Suspect]
     Indication: SPONDYLOARTHROPATHY
     Route: 058
     Dates: start: 20020114, end: 20070329
  2. CIPRO [Concomitant]
     Route: 048
  3. CELEBREX [Concomitant]
  4. PREMARIN [Concomitant]

REACTIONS (6)
  - COLITIS ULCERATIVE [None]
  - DIARRHOEA HAEMORRHAGIC [None]
  - FEMALE GENITAL TRACT FISTULA [None]
  - NAUSEA [None]
  - PYURIA [None]
  - WEIGHT DECREASED [None]
